FAERS Safety Report 6681882-X (Version None)
Quarter: 2010Q2

REPORT INFORMATION
  Report Type: 
  Country: None (occurrence: None)
  Receive Date: 20100414
  Receipt Date: 20100406
  Transmission Date: 20101027
  Serious: Yes (Other)
  Sender: FDA-Public Use
  Company Number: US-GENENTECH-298215

PATIENT
  Sex: Female
  Weight: 82.086 kg

DRUGS (4)
  1. XOLAIR [Suspect]
     Indication: ASTHMA
     Dosage: 300 MG, 1/MONTH
     Route: 030
     Dates: start: 20091116, end: 20100324
  2. ASMANEX TWISTHALER [Concomitant]
     Indication: DRUG USE FOR UNKNOWN INDICATION
  3. CLARITIN [Concomitant]
     Indication: DRUG USE FOR UNKNOWN INDICATION
  4. SINGULAIR [Concomitant]
     Indication: DRUG USE FOR UNKNOWN INDICATION

REACTIONS (8)
  - ALOPECIA [None]
  - ASTHENIA [None]
  - FOOD ALLERGY [None]
  - INFLUENZA LIKE ILLNESS [None]
  - PHARYNGEAL OEDEMA [None]
  - UNEVALUABLE EVENT [None]
  - VASODILATATION [None]
  - WEIGHT INCREASED [None]
